FAERS Safety Report 8065828-8 (Version None)
Quarter: 2012Q1

REPORT INFORMATION
  Report Type: 
  Country: None (occurrence: None)
  Receive Date: 20120117
  Receipt Date: 20120102
  Transmission Date: 20120608
  Serious: Yes (Hospitalization)
  Sender: FDA-Public Use
  Company Number: 2012CP000001

PATIENT
  Age: 68 Year
  Sex: Male

DRUGS (13)
  1. ULTIVA [Suspect]
     Indication: ANAESTHESIA
     Dosage: IV
     Route: 042
     Dates: start: 20111023
  2. JANUVIA [Concomitant]
  3. PERMIXON [Concomitant]
  4. TRACRIUM [Suspect]
     Indication: ANAESTHESIA
     Dosage: IV
     Route: 042
     Dates: start: 20111023
  5. IRBESARTAN [Concomitant]
  6. ACUPAN [Suspect]
     Indication: ANAESTHESIA
     Dosage: IV
     Route: 042
     Dates: start: 20111023
  7. DIPRIVAN [Suspect]
     Indication: ANAESTHESIA
     Dosage: IV
     Route: 042
     Dates: start: 20111023
  8. GLIMEPIRIDE [Concomitant]
  9. LANTUS [Concomitant]
  10. KETOPROFEN [Suspect]
     Indication: ANAESTHESIA
     Dosage: IV
     Route: 042
     Dates: start: 20111023
  11. CRESTOR [Concomitant]
  12. ACETAMINOPHEN [Suspect]
     Indication: ANAESTHESIA
     Dosage: IV
     Route: 042
     Dates: start: 20111023
  13. POLYETHYLENE GLYCOL [Concomitant]

REACTIONS (1)
  - HEPATITIS [None]
